FAERS Safety Report 13405532 (Version 1)
Quarter: 2017Q2

REPORT INFORMATION
  Report Type: Spontaneous
  Country: PL (occurrence: PL)
  Receive Date: 20170405
  Receipt Date: 20170405
  Transmission Date: 20170830
  Serious: Yes (Hospitalization)
  Sender: FDA-Public Use
  Company Number: PL-TEVA-755389ACC

PATIENT
  Sex: Male

DRUGS (4)
  1. BLEOMYCIN [Suspect]
     Active Substance: BLEOMYCIN SULFATE
     Route: 042
     Dates: start: 20160802, end: 20160802
  2. VINBLASTINE [Suspect]
     Active Substance: VINBLASTINE
     Route: 042
     Dates: start: 20160802, end: 20160802
  3. DOXORUBICIN [Suspect]
     Active Substance: DOXORUBICIN
     Route: 042
     Dates: start: 20160802, end: 20160802
  4. DACARBAZINE. [Suspect]
     Active Substance: DACARBAZINE
     Route: 042
     Dates: start: 20160802, end: 20160802

REACTIONS (1)
  - Neutropenia [Recovered/Resolved]

NARRATIVE: CASE EVENT DATE: 20160804
